FAERS Safety Report 17453665 (Version 1)
Quarter: 2020Q1

REPORT INFORMATION
  Report Type: Spontaneous
  Country: US (occurrence: US)
  Receive Date: 20200224
  Receipt Date: 20200224
  Transmission Date: 20200409
  Serious: No
  Sender: FDA-Public Use
  Company Number: US-VYERA PHARMACEUTICALS, LLC-2020VYE00002

PATIENT
  Age: 24 Year
  Sex: Female
  Weight: 73.92 kg

DRUGS (5)
  1. LEUCOVORIN. [Concomitant]
     Active Substance: LEUCOVORIN
  2. DARAPRIM [Suspect]
     Active Substance: PYRIMETHAMINE
     Dosage: 50 MG, 1X/DAY
     Route: 048
     Dates: start: 20191201, end: 20191211
  3. DARAPRIM [Suspect]
     Active Substance: PYRIMETHAMINE
     Indication: CONGENITAL TOXOPLASMOSIS
     Dosage: 50 MG, 2X/DAY
     Route: 048
     Dates: start: 20191129, end: 20191130
  4. SULFADIAZINE. [Concomitant]
     Active Substance: SULFADIAZINE
  5. HYDROXYZINE [Concomitant]
     Active Substance: HYDROXYZINE HYDROCHLORIDE

REACTIONS (3)
  - Exposure during pregnancy [Recovered/Resolved]
  - Nausea [Recovered/Resolved]
  - Vomiting [Recovered/Resolved]

NARRATIVE: CASE EVENT DATE: 20191129
